FAERS Safety Report 23140550 (Version 1)
Quarter: 2023Q4

REPORT INFORMATION
  Report Type: Spontaneous
  Country: CN (occurrence: CN)
  Receive Date: 20231102
  Receipt Date: 20231102
  Transmission Date: 20240110
  Serious: Yes (Disabling)
  Sender: FDA-Public Use
  Company Number: CN-ABBVIE-5477942

PATIENT
  Age: 46 Year
  Sex: Male
  Weight: 50 kg

DRUGS (1)
  1. LOPINAVIR\RITONAVIR [Suspect]
     Active Substance: LOPINAVIR\RITONAVIR
     Indication: Prophylaxis against HIV infection
     Dosage: 1 GRAM?ALUVIA 200/50
     Route: 048
     Dates: start: 20231006, end: 20231015

REACTIONS (2)
  - Hepatic function abnormal [Recovering/Resolving]
  - Asthenia [Recovering/Resolving]

NARRATIVE: CASE EVENT DATE: 20231013
